FAERS Safety Report 6782259-9 (Version None)
Quarter: 2010Q2

REPORT INFORMATION
  Report Type: 
  Country: None (occurrence: None)
  Receive Date: 20100621
  Receipt Date: 20100609
  Transmission Date: 20101027
  Serious: Yes (Other)
  Sender: FDA-Public Use
  Company Number: US-CELGENEUS-163-21880-10061016

PATIENT
  Age: 53 Year
  Sex: Female
  Weight: 100 kg

DRUGS (4)
  1. REVLIMID [Suspect]
     Indication: MULTIPLE MYELOMA
     Route: 048
     Dates: start: 20091103, end: 20100207
  2. VELCADE [Suspect]
     Indication: MULTIPLE MYELOMA
     Route: 040
     Dates: start: 20091103, end: 20100204
  3. DEXAMETHASONE [Suspect]
     Indication: MULTIPLE MYELOMA
     Route: 048
     Dates: start: 20091103, end: 20100205
  4. ASPIRIN [Concomitant]
     Indication: DRUG USE FOR UNKNOWN INDICATION
     Route: 065

REACTIONS (8)
  - DRY MOUTH [None]
  - FATIGUE [None]
  - GAIT DISTURBANCE [None]
  - KERATOCONJUNCTIVITIS SICCA [None]
  - MUSCULAR WEAKNESS [None]
  - PERIPHERAL MOTOR NEUROPATHY [None]
  - PERIPHERAL SENSORY NEUROPATHY [None]
  - TREMOR [None]
